FAERS Safety Report 5857232-5 (Version None)
Quarter: 2008Q3

REPORT INFORMATION
  Report Type: 
  Country: None (occurrence: None)
  Receive Date: 20080821
  Receipt Date: 20080807
  Transmission Date: 20090109
  Serious: Yes (Other)
  Sender: FDA-Public Use
  Company Number: DE-1167032

PATIENT
  Age: 70 Year
  Sex: Female

DRUGS (1)
  1. MAXITROL [Suspect]
     Dosage: OPHTHALMIC
     Route: 047
     Dates: start: 20080710

REACTIONS (4)
  - CATARACT [None]
  - EYE INFLAMMATION [None]
  - EYE PAIN [None]
  - INTRAOCULAR PRESSURE INCREASED [None]
